FAERS Safety Report 8121023-5 (Version None)
Quarter: 2012Q1

REPORT INFORMATION
  Report Type: 
  Country: None (occurrence: None)
  Receive Date: 20120203
  Receipt Date: 20120124
  Transmission Date: 20120608
  Serious: Yes (Other)
  Sender: FDA-Public Use
  Company Number: GB-GDP-12412848

PATIENT
  Age: 63 Year
  Sex: Female
  Weight: 85.1 kg

DRUGS (23)
  1. MONTELUKAST [Concomitant]
  2. LORAZEPAM [Concomitant]
  3. ACETAMINOPHEN AND CODEINE PHOSPHATE [Concomitant]
  4. TIOPRONIN [Concomitant]
  5. THEOPHYLLINE [Concomitant]
  6. DILTIAZEM HCL [Concomitant]
  7. PREDNISOLONE [Concomitant]
  8. DOXYCYCLINE [Suspect]
     Indication: PRODUCT USED FOR UNKNOWN INDICATION
     Dates: start: 20111209, end: 20111223
  9. DOXYCYCLINE [Suspect]
     Indication: PRODUCT USED FOR UNKNOWN INDICATION
     Dates: start: 20111021, end: 20111028
  10. DOXYCYCLINE [Suspect]
     Indication: PRODUCT USED FOR UNKNOWN INDICATION
     Dates: start: 20111108, end: 20111115
  11. DOXYCYCLINE [Suspect]
     Indication: PRODUCT USED FOR UNKNOWN INDICATION
     Dates: start: 20120115
  12. SERETIDE /01434201/ [Concomitant]
  13. VENTOLIN [Concomitant]
  14. TEARS NATURALE [Concomitant]
  15. CIPROFLOXACIN [Concomitant]
  16. CALCIUM CARBONATE [Concomitant]
  17. AMOXICILLIN [Concomitant]
  18. ASPIRIN [Concomitant]
  19. CARBOCISTEINE [Concomitant]
  20. NITROGLYCERIN [Concomitant]
  21. PREDNISOLONE SODIUM SUCCINATE INJ [Concomitant]
  22. ALBUTEROL SULFATE AUTOHALER [Concomitant]
  23. SIMVASTATIN [Concomitant]

REACTIONS (1)
  - VOMITING [None]
